FAERS Safety Report 5573213-3 (Version None)
Quarter: 2007Q4

REPORT INFORMATION
  Report Type: 
  Country: None (occurrence: None)
  Receive Date: 20071220
  Receipt Date: 20071207
  Transmission Date: 20080405
  Serious: Yes (Disabling, Other)
  Sender: FDA-Public Use
  Company Number: 100#01#2007-05283

PATIENT
  Age: 32 Year
  Sex: Male

DRUGS (1)
  1. CARBAMAZEPINE [Suspect]
     Indication: EPILEPSY
     Dosage: 400 MG TWICE DAILY ORAL
     Route: 048
     Dates: start: 20071112, end: 20071115

REACTIONS (3)
  - DRUG INEFFECTIVE [None]
  - EPILEPSY [None]
  - HEADACHE [None]
